FAERS Safety Report 15662809 (Version 3)
Quarter: 2019Q2

REPORT INFORMATION
  Report Type: Spontaneous
  Country: US (occurrence: US)
  Receive Date: 20181127
  Receipt Date: 20190402
  Transmission Date: 20190711
  Serious: Yes (Other)
  Sender: FDA-Public Use
  Company Number: US-SA-2018SA175030

PATIENT
  Age: 67 Year
  Sex: Female
  Weight: 95.2 kg

DRUGS (5)
  1. DOCETAXEL. [Suspect]
     Active Substance: DOCETAXEL
     Indication: BREAST CANCER FEMALE
     Dosage: 80 MG, Q3W
     Route: 042
     Dates: start: 20130611, end: 20130611
  2. DOCETAXEL. [Suspect]
     Active Substance: DOCETAXEL
     Dosage: 80 MG, Q3W
     Route: 042
     Dates: start: 20130814, end: 20130814
  3. DOXORUBICIN [Concomitant]
     Active Substance: DOXORUBICIN
  4. CYTOXAN [Concomitant]
     Active Substance: CYCLOPHOSPHAMIDE
  5. NEOSAR [Concomitant]
     Active Substance: CYCLOPHOSPHAMIDE

REACTIONS (1)
  - Alopecia [Not Recovered/Not Resolved]

NARRATIVE: CASE EVENT DATE: 20130613
